FAERS Safety Report 6357986-8 (Version None)
Quarter: 2009Q3

REPORT INFORMATION
  Report Type: 
  Country: None (occurrence: None)
  Receive Date: 20090916
  Receipt Date: 20090909
  Transmission Date: 20100115
  Serious: Yes (Hospitalization, Other)
  Sender: FDA-Public Use
  Company Number: US-ABBOTT-09P-163-0563441-00

PATIENT
  Sex: Female
  Weight: 59.02 kg

DRUGS (4)
  1. HUMIRA [Suspect]
     Indication: COLITIS ULCERATIVE
     Dates: start: 20090316, end: 20090316
  2. HUMIRA [Suspect]
  3. BETADINE [Suspect]
     Indication: APPENDICECTOMY
     Dates: start: 20090319, end: 20090319
  4. PREDNISONE [Concomitant]
     Indication: COLITIS ULCERATIVE

REACTIONS (9)
  - APPENDICITIS [None]
  - APPLICATION SITE REACTION [None]
  - FATIGUE [None]
  - HYPOAESTHESIA [None]
  - INFLUENZA LIKE ILLNESS [None]
  - NOCTURIA [None]
  - PARAESTHESIA [None]
  - RASH [None]
  - URTICARIA [None]
